FAERS Safety Report 15888557 (Version 4)
Quarter: 2019Q4

REPORT INFORMATION
  Report Type: Spontaneous
  Country: JP (occurrence: JP)
  Receive Date: 20190130
  Receipt Date: 20191202
  Transmission Date: 20200122
  Serious: Yes (Hospitalization, Other)
  Sender: FDA-Public Use
  Company Number: JP-ROCHE-2254356

PATIENT
  Age: 40 Year
  Sex: Female

DRUGS (2)
  1. XOFLUZA [Suspect]
     Active Substance: BALOXAVIR MARBOXIL
     Indication: INFLUENZA
     Route: 048
     Dates: start: 20190118, end: 20190118
  2. XOFLUZA [Suspect]
     Active Substance: BALOXAVIR MARBOXIL
     Route: 065
     Dates: start: 201901, end: 201901

REACTIONS (4)
  - Face oedema [Unknown]
  - Shock [Recovered/Resolved]
  - Urticaria [Unknown]
  - Anaphylactic reaction [Unknown]

NARRATIVE: CASE EVENT DATE: 2019
